FAERS Safety Report 21696133 (Version 1)
Quarter: 2022Q4

REPORT INFORMATION
  Report Type: Spontaneous
  Country: US (occurrence: None)
  Receive Date: 20221207
  Receipt Date: 20221207
  Transmission Date: 20230112
  Serious: Yes (Hospitalization)
  Sender: FDA-Public Use
  Company Number: None

PATIENT
  Age: 56 Year
  Sex: Male
  Weight: 72.6 kg

DRUGS (1)
  1. AVELUMAB [Suspect]
     Active Substance: AVELUMAB
     Dates: end: 20221202

REACTIONS (7)
  - Facial paralysis [None]
  - Asthenia [None]
  - Dizziness [None]
  - Confusional state [None]
  - Presyncope [None]
  - Blood pressure systolic decreased [None]
  - Carotid artery stenosis [None]

NARRATIVE: CASE EVENT DATE: 20221205
